FAERS Safety Report 20945149 (Version 1)
Quarter: 2022Q2

REPORT INFORMATION
  Report Type: Report from Study
  Country: US (occurrence: US)
  Receive Date: 20220610
  Receipt Date: 20220610
  Transmission Date: 20220721
  Serious: Yes (Other)
  Sender: FDA-Public Use
  Company Number: US-GILEAD-2022-0584881

PATIENT
  Age: 42 Year
  Sex: Male

DRUGS (1)
  1. BICTEGRAVIR\EMTRICITABINE\TENOFOVIR ALAFENAMIDE [Suspect]
     Active Substance: BICTEGRAVIR\EMTRICITABINE\TENOFOVIR ALAFENAMIDE
     Indication: HIV infection
     Route: 065

REACTIONS (7)
  - Bipolar disorder [Unknown]
  - Hypersensitivity [Unknown]
  - Back disorder [Unknown]
  - Gastrointestinal disorder [Unknown]
  - Migraine [Unknown]
  - Scoliosis [Unknown]
  - Herpes zoster [Unknown]
